FAERS Safety Report 16451192 (Version 1)
Quarter: 2019Q3

REPORT INFORMATION
  Report Type: Spontaneous
  Country: US (occurrence: US)
  Receive Date: 20190618
  Receipt Date: 20190618
  Transmission Date: 20191004
  Serious: Yes (Other)
  Sender: FDA-Public Use
  Company Number: None

PATIENT
  Age: 56 Year
  Sex: Female
  Weight: 92.25 kg

DRUGS (8)
  1. LEVOTHYROXINE. [Concomitant]
     Active Substance: LEVOTHYROXINE
  2. MULTIVITAMIN [Concomitant]
     Active Substance: VITAMINS
  3. BUPROPION. [Suspect]
     Active Substance: BUPROPION
     Indication: DEPRESSION
     Dosage: ?          QUANTITY:90 TABLET(S);?
     Route: 048
     Dates: start: 20190514, end: 20190617
  4. VITAMIN D [Concomitant]
     Active Substance: VITAMIN D NOS
  5. ASPIRIN. [Concomitant]
     Active Substance: ASPIRIN
  6. MAGNESIUM [Concomitant]
     Active Substance: MAGNESIUM
  7. CALCITRIOL. [Concomitant]
     Active Substance: CALCITRIOL
  8. BUPROPION. [Concomitant]
     Active Substance: BUPROPION

REACTIONS (9)
  - Hyperaesthesia [None]
  - Hot flush [None]
  - Insomnia [None]
  - Product substitution issue [None]
  - Irritability [None]
  - Headache [None]
  - Feeling jittery [None]
  - Panic attack [None]
  - Constipation [None]

NARRATIVE: CASE EVENT DATE: 20190516
